FAERS Safety Report 18963194 (Version 1)
Quarter: 2021Q1

REPORT INFORMATION
  Report Type: Spontaneous
  Country: US (occurrence: US)
  Receive Date: 20210303
  Receipt Date: 20210303
  Transmission Date: 20210420
  Serious: No
  Sender: FDA-Public Use
  Company Number: None

PATIENT
  Age: 75 Year
  Sex: Female
  Weight: 72.9 kg

DRUGS (21)
  1. ATORVASTATIN [Concomitant]
     Active Substance: ATORVASTATIN
  2. CLOBETASOL PROPIONATE. [Concomitant]
     Active Substance: CLOBETASOL PROPIONATE
  3. TUMERSAID [Concomitant]
  4. CINNAMON. [Concomitant]
     Active Substance: CINNAMON
  5. MULTIVITAMIN [Concomitant]
     Active Substance: VITAMINS
  6. VICTOZA [Concomitant]
     Active Substance: LIRAGLUTIDE
  7. VITAMIN E COMPLEX [Concomitant]
  8. ESZOPICLONE. [Concomitant]
     Active Substance: ESZOPICLONE
  9. GLIPIZIDE. [Concomitant]
     Active Substance: GLIPIZIDE
  10. CAPECITABINE. [Suspect]
     Active Substance: CAPECITABINE
     Indication: BREAST CANCER
     Dosage: OTHER FREQUENCY:BID 7 ON/7 OFF;?
     Dates: start: 20210127
  11. ASPIRIN. [Concomitant]
     Active Substance: ASPIRIN
  12. XGEVA [Concomitant]
     Active Substance: DENOSUMAB
  13. IRON [Concomitant]
     Active Substance: IRON
  14. MAGNESIUM OXIDE. [Concomitant]
     Active Substance: MAGNESIUM OXIDE
  15. METFORMIN [Concomitant]
     Active Substance: METFORMIN HYDROCHLORIDE
  16. NITROFURANTOIN. [Concomitant]
     Active Substance: NITROFURANTOIN
  17. SIMVASTATIN. [Concomitant]
     Active Substance: SIMVASTATIN
  18. VITAMIN B12 [Concomitant]
     Active Substance: CYANOCOBALAMIN
  19. LOSARATAN [Concomitant]
  20. WELCHOL [Concomitant]
     Active Substance: COLESEVELAM HYDROCHLORIDE
  21. CALCIUM + D [Concomitant]
     Active Substance: CALCIUM\VITAMIN D

REACTIONS (2)
  - Memory impairment [None]
  - Diarrhoea [None]

NARRATIVE: CASE EVENT DATE: 20210303
